FAERS Safety Report 9546850 (Version 1)
Quarter: 2013Q3

REPORT INFORMATION
  Report Type: Spontaneous
  Country: US (occurrence: None)
  Receive Date: 20130920
  Receipt Date: 20130920
  Transmission Date: 20140515
  Serious: No
  Sender: FDA-Public Use
  Company Number: None

PATIENT
  Sex: 0

DRUGS (2)
  1. LEUCOVORIN CALCIUM ( LEUCOVORIN) [Suspect]
  2. LEVOLEUCOVORIN CALCIUM ( LEVOLEUCOVORIN) [Suspect]

REACTIONS (2)
  - Medication error [None]
  - Drug dispensing error [None]
